FAERS Safety Report 4458238-3 (Version None)
Quarter: 2004Q3

REPORT INFORMATION
  Report Type: 
  Country: None (occurrence: None)
  Receive Date: 20040922
  Receipt Date: 20040902
  Transmission Date: 20050211
  Serious: Yes (Hospitalization)
  Sender: FDA-Public Use
  Company Number: JP_040804166

PATIENT
  Sex: Female

DRUGS (2)
  1. EVISTA [Suspect]
     Dosage: 60 MG DAY
     Dates: start: 20040101
  2. MYSLEE (ZOLPIDEN TARTRATE) [Concomitant]

REACTIONS (3)
  - AUTOIMMUNE DISORDER [None]
  - JAUNDICE [None]
  - LIVER DISORDER [None]
